FAERS Safety Report 5024565-4 (Version None)
Quarter: 2006Q2

REPORT INFORMATION
  Report Type: 
  Country: None (occurrence: None)
  Receive Date: 20060613
  Receipt Date: 20060602
  Transmission Date: 20061013
  Serious: Yes (Other)
  Sender: FDA-Public Use
  Company Number: FR-SP-2006-01356

PATIENT
  Age: 73 Year
  Sex: Male
  Weight: 74 kg

DRUGS (2)
  1. IMMUCYST [Suspect]
     Indication: BLADDER CANCER
     Route: 043
     Dates: start: 20050511, end: 20051123
  2. IMMUCYST [Suspect]
     Route: 043
     Dates: start: 20050511, end: 20051123

REACTIONS (7)
  - CYSTITIS [None]
  - DRUG DOSE OMISSION [None]
  - DYSURIA [None]
  - PERINEAL PAIN [None]
  - POLLAKIURIA [None]
  - PROSTATITIS [None]
  - URETHRAL PAIN [None]
